FAERS Safety Report 4418433-6 (Version None)
Quarter: 2004Q3

REPORT INFORMATION
  Report Type: 
  Country: None (occurrence: None)
  Receive Date: 20040809
  Receipt Date: 20040427
  Transmission Date: 20050211
  Serious: No
  Sender: FDA-Public Use
  Company Number: US-GLAXOSMITHKLINE-A0508674A

PATIENT
  Age: 43 Year
  Sex: Male

DRUGS (6)
  1. PAXIL CR [Suspect]
     Indication: DEPRESSION
     Dosage: 12.5MG PER DAY
     Route: 048
     Dates: start: 20040426
  2. PRILOSEC [Concomitant]
  3. DIAZEPAM [Concomitant]
  4. TOPROL-XL [Concomitant]
  5. ZYPREXA [Concomitant]
  6. ARTANE [Concomitant]

REACTIONS (2)
  - ENERGY INCREASED [None]
  - STOMACH DISCOMFORT [None]
